FAERS Safety Report 18751438 (Version 4)
Quarter: 2021Q2

REPORT INFORMATION
  Report Type: Spontaneous
  Country: CO (occurrence: CO)
  Receive Date: 20210118
  Receipt Date: 20210430
  Transmission Date: 20210717
  Serious: Yes (Other)
  Sender: FDA-Public Use
  Company Number: CO-AMGEN-COLSP2021006129

PATIENT
  Age: 73 Year
  Sex: Male
  Weight: 56 kg

DRUGS (11)
  1. NEULASTA [Suspect]
     Active Substance: PEGFILGRASTIM
     Indication: INTESTINAL ADENOCARCINOMA
     Dosage: 6/0.6 MILLIGRAM PER MILLILITRE
     Route: 058
     Dates: start: 20201109
  2. NEULASTA [Suspect]
     Active Substance: PEGFILGRASTIM
  3. MVASI [Suspect]
     Active Substance: BEVACIZUMAB-AWWB
     Indication: INTESTINAL ADENOCARCINOMA
     Dosage: 280 MILLIGRAM, QD
     Route: 042
     Dates: start: 20201109
  4. LEVOMEPROMAZINE [Suspect]
     Active Substance: LEVOMEPROMAZINE
     Indication: ANXIOLYTIC THERAPY
     Dosage: 4 MILLIGRAM PER MILLILITRE, QD
     Route: 048
     Dates: start: 20210331
  5. FOSAPREPITANT [Concomitant]
     Active Substance: FOSAPREPITANT
     Indication: INTESTINAL ADENOCARCINOMA
     Dosage: 150 MILLIGRAM
     Route: 042
     Dates: start: 20201111
  6. CALCIUM FOLINATE [Concomitant]
     Active Substance: LEUCOVORIN CALCIUM
     Indication: INTESTINAL ADENOCARCINOMA
     Dosage: 628 MILLIGRAM, QD
     Route: 042
     Dates: start: 20201109
  7. DEXAMETHASONE PHOSPHATE [Concomitant]
     Active Substance: DEXAMETHASONE PHOSPHATE
     Indication: INTESTINAL ADENOCARCINOMA
     Dosage: 16 MILLIGRAM
     Route: 042
     Dates: start: 20201111
  8. FLUOROURACIL. [Concomitant]
     Active Substance: FLUOROURACIL
     Indication: INTESTINAL ADENOCARCINOMA
     Dosage: 628 MILLIGRAM, QD
     Route: 042
     Dates: start: 20201109
  9. FLUOROURACIL. [Concomitant]
     Active Substance: FLUOROURACIL
     Dosage: 3768 MILLIGRAM, QD
     Route: 042
     Dates: start: 20201109
  10. ONDASENTRON RICHET [Concomitant]
     Active Substance: ONDANSETRON HYDROCHLORIDE
     Indication: INTESTINAL ADENOCARCINOMA
     Dosage: 16 MILLIGRAM, QD
     Route: 042
     Dates: start: 20201111
  11. OXALIPLATIN. [Concomitant]
     Active Substance: OXALIPLATIN
     Indication: INTESTINAL ADENOCARCINOMA
     Dosage: 133.45 MILLIGRAM
     Route: 042
     Dates: start: 20201109

REACTIONS (3)
  - Mucosal inflammation [Not Recovered/Not Resolved]
  - Abdominal pain [Not Recovered/Not Resolved]
  - Adenocarcinoma of colon [Not Recovered/Not Resolved]

NARRATIVE: CASE EVENT DATE: 20201224
